FAERS Safety Report 8372627-6 (Version None)
Quarter: 2012Q2

REPORT INFORMATION
  Report Type: 
  Country: None (occurrence: None)
  Receive Date: 20120521
  Receipt Date: 20120515
  Transmission Date: 20120825
  Serious: Yes (Death, Other)
  Sender: FDA-Public Use
  Company Number: PHHY2012MX037981

PATIENT
  Sex: Male

DRUGS (4)
  1. STALEVO 100 [Suspect]
     Indication: PARKINSON'S DISEASE
     Dosage: 3 TABLETS DAILY OF 200/100/25 MG
     Route: 048
     Dates: start: 20090525
  2. STALEVO 100 [Suspect]
     Dosage: 3 TABLETS DAILY OF 200/150/37.5 MG
  3. LOSARTAN POTASSIUM [Concomitant]
     Indication: HYPERTENSION
     Dosage: 1 DF, PER DAY
  4. DRUG USED IN DIABETES [Concomitant]
     Indication: DIABETES MELLITUS

REACTIONS (5)
  - DYSPNOEA [None]
  - RESPIRATORY ARREST [None]
  - MYOCARDIAL INFARCTION [None]
  - COUGH [None]
  - FEELING ABNORMAL [None]
